FAERS Safety Report 5757638-9 (Version None)
Quarter: 2008Q2

REPORT INFORMATION
  Report Type: 
  Country: None (occurrence: None)
  Receive Date: 20080529
  Receipt Date: 20080521
  Transmission Date: 20081010
  Serious: Yes (Other)
  Sender: FDA-Public Use
  Company Number: 2008013512

PATIENT
  Age: 69 Year
  Sex: Female
  Weight: 70 kg

DRUGS (5)
  1. CETIRIZINE HCL [Suspect]
     Dosage: 5MG TWICE DAILY, ORAL
     Route: 048
  2. TICLOPIDINE HYDROCHLORIDE [Concomitant]
  3. VENTOLIN [Concomitant]
  4. ATROVENT (IPARTROPIUM BROMIDE) [Concomitant]
  5. BECLOFORTE (BECLOMETASONE DIPROPIONATE) [Concomitant]

REACTIONS (1)
  - DEPRESSION [None]
